FAERS Safety Report 23699234 (Version 2)
Quarter: 2024Q2

REPORT INFORMATION
  Report Type: Spontaneous
  Country: US (occurrence: US)
  Receive Date: 20240402
  Receipt Date: 20240424
  Transmission Date: 20240716
  Serious: No
  Sender: FDA-Public Use
  Company Number: US-PFIZER INC-202400075419

PATIENT
  Age: 44 Year
  Sex: Female
  Weight: 74.376 kg

DRUGS (11)
  1. PAXLOVID [Suspect]
     Active Substance: NIRMATRELVIR\RITONAVIR
     Indication: COVID-19 treatment
     Dosage: UNK
     Route: 048
     Dates: start: 20240320, end: 20240323
  2. VITAMINS NOS [Concomitant]
     Active Substance: VITAMINS
     Dosage: 1 DAILY IN MORNING
     Dates: start: 20240101, end: 20240329
  3. ALLEGRA [Concomitant]
     Active Substance: FEXOFENADINE HYDROCHLORIDE
     Dosage: MORNING
     Dates: start: 20240101, end: 20240329
  4. FLUTICASONE [Concomitant]
     Active Substance: FLUTICASONE
     Dosage: MORINING AND NIGHT
     Dates: start: 20240101, end: 20240329
  5. GLUTAMINE [Concomitant]
     Active Substance: GLUTAMINE
     Dosage: MORNING
     Dates: start: 20240306, end: 20240329
  6. OMEGA-3 FATTY ACIDS [Concomitant]
     Active Substance: OMEGA-3 FATTY ACIDS
     Dosage: MORNING
     Dates: start: 20240306, end: 20240329
  7. HERBALS\WITHANIA SOMNIFERA ROOT [Concomitant]
     Active Substance: HERBALS\WITHANIA SOMNIFERA ROOT
     Dosage: MORNING
     Dates: start: 20240306, end: 20240329
  8. VITAMIN D3 [Concomitant]
     Active Substance: CHOLECALCIFEROL
     Dosage: 2000 IU (50MCG), NIGHTLY
     Dates: start: 20240101, end: 20240329
  9. HERBALS\TURMERIC [Concomitant]
     Active Substance: HERBALS\TURMERIC
     Dosage: NIGHTLY
     Dates: start: 20240101, end: 20240329
  10. MAGNESIUM GLYCINATE [Concomitant]
     Active Substance: MAGNESIUM GLYCINATE
     Dosage: NIGHTLY
     Dates: start: 20240101, end: 20240329
  11. ZINC [Concomitant]
     Active Substance: PYRITHIONE ZINC\ZINC\ZINC CHLORIDE
     Dosage: NIGHTLY
     Dates: start: 20240101, end: 20240329

REACTIONS (3)
  - COVID-19 [Recovering/Resolving]
  - Disease recurrence [Recovering/Resolving]
  - Incorrect product administration duration [Unknown]

NARRATIVE: CASE EVENT DATE: 20240301
